FAERS Safety Report 6465982-5 (Version None)
Quarter: 2009Q4

REPORT INFORMATION
  Report Type: 
  Country: None (occurrence: None)
  Receive Date: 20091201
  Receipt Date: 20091201
  Transmission Date: 20100525
  Serious: Yes (Death, Life-Threatening, Disabling, Other)
  Sender: FDA-Public Use
  Company Number: None

PATIENT
  Age: 34 Year
  Sex: Female
  Weight: 50.349 kg

DRUGS (3)
  1. DOXYCYCLINE HYCLATE [Suspect]
     Indication: INFECTION
     Dosage: TAKE 2 TABS DAILY BID DAILY ORAL
     Route: 048
     Dates: start: 20081015
  2. DOXYCYCLINE HYCLATE [Suspect]
     Indication: INFECTION
     Dosage: TAKE 2 TABS DAILY BID DAILY ORAL
     Route: 048
     Dates: start: 20081018
  3. BIRTH CONTROL SHOT [Suspect]
     Indication: CONTRACEPTION
     Dosage: 1 DOSE EVERY 3 MONTHS SHOT
     Dates: start: 20091023

REACTIONS (8)
  - DRUG INEFFECTIVE [None]
  - INAPPROPRIATE SCHEDULE OF DRUG ADMINISTRATION [None]
  - PRODUCT CONTAMINATION [None]
  - PRODUCT COUNTERFEIT [None]
  - PRODUCT LABEL ISSUE [None]
  - PRODUCT PACKAGING ISSUE [None]
  - PRODUCT QUALITY ISSUE [None]
  - TREATMENT NONCOMPLIANCE [None]
